FAERS Safety Report 7622983-9 (Version None)
Quarter: 2011Q3

REPORT INFORMATION
  Report Type: 
  Country: None (occurrence: None)
  Receive Date: 20110720
  Receipt Date: 20110711
  Transmission Date: 20111222
  Serious: Yes (Other)
  Sender: FDA-Public Use
  Company Number: US-NOVOPROD-331007

PATIENT
  Sex: Female

DRUGS (2)
  1. NOVOLOG [Suspect]
     Indication: TYPE 2 DIABETES MELLITUS
     Dosage: UNK
     Route: 058
  2. LANTUS [Suspect]
     Indication: TYPE 2 DIABETES MELLITUS
     Dosage: ONCE DAILY
     Route: 058

REACTIONS (7)
  - ANAPHYLACTIC REACTION [None]
  - BLOOD GLUCOSE INCREASED [None]
  - INTRADUCTAL PAPILLARY MUCINOUS NEOPLASM [None]
  - ANGIOEDEMA [None]
  - DRUG HYPERSENSITIVITY [None]
  - ANXIETY [None]
  - INCREASED APPETITE [None]
